FAERS Safety Report 5489905-0 (Version None)
Quarter: 2007Q4

REPORT INFORMATION
  Report Type: 
  Country: None (occurrence: None)
  Receive Date: 20071010
  Receipt Date: 20070307
  Transmission Date: 20080405
  Serious: Yes (Life-Threatening)
  Sender: FDA-Public Use
  Company Number: 2007-0154

PATIENT
  Age: 18 Year
  Sex: Male

DRUGS (5)
  1. CEFDITOREN PIVOXIL 200 MG [Suspect]
     Indication: SKIN INFECTION
     Dosage: 200 MG, QD, ORAL
     Route: 048
     Dates: start: 20070305, end: 20070306
  2. CONCERTA [Concomitant]
  3. NEURONTIN [Concomitant]
  4. KEPPRA [Concomitant]
  5. LAMICTAL [Concomitant]

REACTIONS (1)
  - CONVULSION [None]
